FAERS Safety Report 5004565-0 (Version None)
Quarter: 2006Q2

REPORT INFORMATION
  Report Type: 
  Country: None (occurrence: None)
  Receive Date: 20060516
  Receipt Date: 20060516
  Transmission Date: 20061013
  Serious: No
  Sender: FDA-Public Use
  Company Number: None

PATIENT
  Sex: Female
  Weight: 12.4739 kg

DRUGS (1)
  1. DIMETAPP [Suspect]
     Indication: COUGH
     Dosage: 3/4 TEASPOON AT BEDTIME PO
     Route: 048
     Dates: start: 20060508, end: 20060515

REACTIONS (1)
  - INCORRECT DOSE ADMINISTERED [None]
